FAERS Safety Report 25007223 (Version 1)
Quarter: 2025Q1

REPORT INFORMATION
  Report Type: Spontaneous
  Country: US (occurrence: US)
  Receive Date: 20250225
  Receipt Date: 20250225
  Transmission Date: 20250409
  Serious: No
  Sender: JOHNSON AND JOHNSON
  Company Number: US-JNJFOC-20250224433

PATIENT
  Sex: Male

DRUGS (1)
  1. TREMFYA [Suspect]
     Active Substance: GUSELKUMAB
     Indication: Gait inability
     Route: 065

REACTIONS (3)
  - Gait disturbance [Recovering/Resolving]
  - Skin injury [Recovering/Resolving]
  - Product dose omission issue [Unknown]
